FAERS Safety Report 9624489 (Version 1)
Quarter: 2013Q4

REPORT INFORMATION
  Report Type: Spontaneous
  Country: GB (occurrence: None)
  Receive Date: 20131010
  Receipt Date: 20131010
  Transmission Date: 20140711
  Serious: Yes (Life-Threatening)
  Sender: FDA-Public Use
  Company Number: 1943579

PATIENT
  Age: 61 Year
  Sex: Female
  Weight: 56.8 kg

DRUGS (3)
  1. DOCETAXEL [Suspect]
     Indication: BREAST CANCER
     Route: 042
     Dates: start: 20130822, end: 20130822
  2. ISONIAZID + RIFAMPICIN [Suspect]
     Indication: TUBERCULOSIS
  3. PYRIDOXINE [Concomitant]

REACTIONS (2)
  - Drug interaction [None]
  - Hepatitis acute [None]
